FAERS Safety Report 6938378-7 (Version None)
Quarter: 2010Q3

REPORT INFORMATION
  Report Type: 
  Country: None (occurrence: None)
  Receive Date: 20100824
  Receipt Date: 20100812
  Transmission Date: 20110219
  Serious: Yes (Hospitalization, Other)
  Sender: FDA-Public Use
  Company Number: JP-PFIZER INC-2009185563

PATIENT
  Age: 26 Year
  Sex: Female
  Weight: 57.7 kg

DRUGS (7)
  1. SUNITINIB MALATE [Suspect]
     Indication: RENAL CELL CARCINOMA
     Dosage: 50 MG, 1X/DAY
     Route: 048
     Dates: start: 20090121, end: 20090524
  2. LOXOPROFEN SODIUM [Concomitant]
     Route: 048
     Dates: end: 20090215
  3. ZOMETA [Concomitant]
     Dosage: 4 MG, 1X/DAY
     Route: 042
     Dates: start: 20090123
  4. CEFZON [Concomitant]
     Dosage: UNK
     Route: 048
     Dates: start: 20090124, end: 20090215
  5. GASTER [Concomitant]
     Dosage: UNK
     Route: 048
  6. SELBEX [Concomitant]
     Route: 048
     Dates: end: 20090125
  7. PURSENNID [Concomitant]
     Dosage: UNK
     Route: 048

REACTIONS (2)
  - INTERSTITIAL LUNG DISEASE [None]
  - NEUTROPHIL COUNT DECREASED [None]
